FAERS Safety Report 12579637 (Version 5)
Quarter: 2020Q2

REPORT INFORMATION
  Report Type: Report from Study
  Country: CZ (occurrence: CZ)
  Receive Date: 20160721
  Receipt Date: 20200625
  Transmission Date: 20200713
  Serious: Yes (Death, Life-Threatening, Hospitalization)
  Sender: FDA-Public Use
  Company Number: CZ-INCYTE CORPORATION-2016IN004467

PATIENT

DRUGS (2)
  1. JAKAVI [Suspect]
     Active Substance: RUXOLITINIB
     Indication: MYELOPROLIFERATIVE NEOPLASM
     Dosage: 20 MG, BID
     Route: 048
     Dates: start: 20131108
  2. ANOPYRIN [Concomitant]
     Active Substance: ASPIRIN
     Indication: PRODUCT USED FOR UNKNOWN INDICATION
     Dosage: 100 MG, QD (0-1-0)
     Route: 065
     Dates: start: 20130703, end: 20140131

REACTIONS (3)
  - Oesophageal varices haemorrhage [Fatal]
  - Product use in unapproved indication [Unknown]
  - Haemorrhage [Fatal]

NARRATIVE: CASE EVENT DATE: 20131108
